FAERS Safety Report 13272668 (Version 1)
Quarter: 2017Q1

REPORT INFORMATION
  Report Type: Spontaneous
  Country: US (occurrence: US)
  Receive Date: 20170226
  Receipt Date: 20170226
  Transmission Date: 20170428
  Serious: Yes (Disabling)
  Sender: FDA-Public Use
  Company Number: None

PATIENT
  Age: 15 Year
  Sex: Female
  Weight: 63 kg

DRUGS (7)
  1. ISOTRETINOIN, CLAVARIS [Suspect]
     Active Substance: ISOTRETINOIN
     Indication: ACNE
     Dosage: ?          QUANTITY:1 CAPSULE(S);?
     Route: 048
     Dates: start: 20160901, end: 20161001
  2. VITAMIN D [Concomitant]
     Active Substance: CHOLECALCIFEROL
  3. ACTEMRA [Concomitant]
     Active Substance: TOCILIZUMAB
  4. NABUMETONE. [Concomitant]
     Active Substance: NABUMETONE
  5. OXYCODONE [Concomitant]
     Active Substance: OXYCODONE
  6. MULTIVITAMIN [Concomitant]
     Active Substance: VITAMINS
  7. MITIGARE [Concomitant]
     Active Substance: COLCHICINE

REACTIONS (5)
  - Nausea [None]
  - Malaise [None]
  - Quality of life decreased [None]
  - Arthralgia [None]
  - Pain [None]

NARRATIVE: CASE EVENT DATE: 20161001
